FAERS Safety Report 6539289-1 (Version None)
Quarter: 2010Q1

REPORT INFORMATION
  Report Type: 
  Country: None (occurrence: None)
  Receive Date: 20100115
  Receipt Date: 20100112
  Transmission Date: 20100710
  Serious: Yes (Life-Threatening, Hospitalization)
  Sender: FDA-Public Use
  Company Number: NL-B.I. PHARMACEUTICALS,INC./RIDGEFIELD-2010-NL-00012NL

PATIENT
  Sex: Female
  Weight: 70 kg

DRUGS (2)
  1. PERSANTIN RETARD 150 [Suspect]
     Indication: CEREBROVASCULAR ACCIDENT
     Dosage: 300 MG
     Dates: start: 19980510
  2. CARBASALATE CALCIUM CARDIO [Concomitant]
     Dosage: 100 MG
     Dates: start: 19980510

REACTIONS (2)
  - ANGINA PECTORIS [None]
  - MUSCLE SPASMS [None]
